FAERS Safety Report 7559777-9 (Version None)
Quarter: 2011Q2

REPORT INFORMATION
  Report Type: 
  Country: None (occurrence: None)
  Receive Date: 20110621
  Receipt Date: 20110609
  Transmission Date: 20111010
  Serious: Yes (Life-Threatening, Hospitalization)
  Sender: FDA-Public Use
  Company Number: DE-ROCHE-782572

PATIENT
  Age: 40 Year
  Sex: Male

DRUGS (1)
  1. ISOTRETINOIN [Suspect]
     Route: 048

REACTIONS (4)
  - PSYCHOTIC DISORDER [None]
  - SUICIDE ATTEMPT [None]
  - ANXIETY [None]
  - LIVER INJURY [None]
